FAERS Safety Report 24818063 (Version 1)
Quarter: 2025Q1

REPORT INFORMATION
  Report Type: Report from Study
  Country: CA (occurrence: CA)
  Receive Date: 20250108
  Receipt Date: 20250108
  Transmission Date: 20250409
  Serious: Yes (Other)
  Sender: TAKEDA
  Company Number: CA-TAKEDA-2024TUS035947

PATIENT
  Age: 10 Year
  Sex: Male

DRUGS (4)
  1. VEDOLIZUMAB [Suspect]
     Active Substance: VEDOLIZUMAB
     Indication: Colitis ulcerative
  2. VITAMIN D [Concomitant]
     Active Substance: VITAMIN D NOS
  3. PREVACID [Concomitant]
     Active Substance: LANSOPRAZOLE
  4. IRON [Concomitant]
     Active Substance: IRON

REACTIONS (3)
  - Rectal haemorrhage [Recovered/Resolved]
  - Off label use [Unknown]
  - Product dose omission issue [Unknown]

NARRATIVE: CASE EVENT DATE: 20240719
